FAERS Safety Report 10219475 (Version 1)
Quarter: 2014Q2

REPORT INFORMATION
  Report Type: Spontaneous
  Country: DE (occurrence: DE)
  Receive Date: 20140605
  Receipt Date: 20140605
  Transmission Date: 20141212
  Serious: Yes (Other)
  Sender: FDA-Public Use
  Company Number: DE-UCBSA-123279

PATIENT
  Age: 27 Year
  Sex: Male
  Weight: 76 kg

DRUGS (4)
  1. KEPPRA [Suspect]
     Dosage: UNK
     Dates: start: 20140523, end: 20140523
  2. CIATYL [Suspect]
     Dosage: UNK
     Dates: start: 20140523, end: 20140523
  3. CARBAMAZEPINE [Suspect]
     Dosage: UNK
     Dates: start: 20140523, end: 20140523
  4. QUILONUM [Suspect]
     Dosage: UNK
     Dates: start: 20140523, end: 20140523

REACTIONS (3)
  - Accidental exposure to product [Unknown]
  - Breath odour [Unknown]
  - Vomiting [Unknown]
